FAERS Safety Report 6975820-X (Version None)
Quarter: 2010Q3

REPORT INFORMATION
  Report Type: 
  Country: None (occurrence: None)
  Receive Date: 20100910
  Receipt Date: 20100901
  Transmission Date: 20110219
  Serious: Yes (Hospitalization)
  Sender: FDA-Public Use
  Company Number: JP-ELI_LILLY_AND_COMPANY-JP201004004160

PATIENT
  Sex: Male
  Weight: 69.2 kg

DRUGS (4)
  1. HUMALOG [Suspect]
     Indication: TYPE 2 DIABETES MELLITUS
     Dosage: 4 U, 0-3/D
     Route: 058
     Dates: start: 20100227, end: 20100325
  2. LOXONIN [Concomitant]
     Indication: ANTIPYRESIS
     Dosage: UNK, UNK
     Route: 048
     Dates: start: 20100308, end: 20100311
  3. MINOCYCLINE HCL [Concomitant]
     Indication: INFECTION PROPHYLAXIS
     Route: 048
     Dates: start: 20100210, end: 20100310
  4. MYSLEE [Concomitant]
     Indication: PROPHYLAXIS
     Route: 048
     Dates: start: 20100201, end: 20100301

REACTIONS (2)
  - EOSINOPHIL COUNT INCREASED [None]
  - THROMBOTIC THROMBOCYTOPENIC PURPURA [None]
